FAERS Safety Report 8140273 (Version 10)
Quarter: 2013Q2

REPORT INFORMATION
  Report Type: Report from Study
  Country: GB (occurrence: GB)
  Receive Date: 20110916
  Receipt Date: 20130613
  Transmission Date: 20140414
  Serious: Yes (Hospitalization)
  Sender: FDA-Public Use
  Company Number: PHHO2011GB06961

PATIENT
  Age: 81 Year
  Sex: Male
  Weight: 84 kg

DRUGS (43)
  1. TAMSULOSIN [Suspect]
     Indication: PROSTATISM
     Dosage: 400 UG, QD (OD)
  2. BLINDED ENALAPRIL [Suspect]
     Indication: CARDIAC FAILURE CHRONIC
     Dosage: CODE NOT BROKEN
     Route: 048
     Dates: start: 20110511, end: 20110603
  3. BLINDED LCZ696 [Suspect]
     Indication: CARDIAC FAILURE CHRONIC
     Dosage: CODE NOT BROKEN
     Route: 048
     Dates: start: 20110511, end: 20110603
  4. BLINDED NO TREATMENT RECEIVED [Suspect]
     Indication: CARDIAC FAILURE CHRONIC
     Dosage: CODE NOT BROKEN
     Route: 048
     Dates: start: 20110511, end: 20110603
  5. BLINDED ENALAPRIL [Suspect]
     Dosage: CODE NOT BROKEN
     Route: 048
     Dates: start: 20110614, end: 20110725
  6. BLINDED LCZ696 [Suspect]
     Dosage: CODE NOT BROKEN
     Route: 048
     Dates: start: 20110614, end: 20110725
  7. BLINDED NO TREATMENT RECEIVED [Suspect]
     Dosage: CODE NOT BROKEN
     Route: 048
     Dates: start: 20110614, end: 20110725
  8. BLINDED ENALAPRIL [Suspect]
     Dosage: CODE NOT BROKEN
     Route: 048
     Dates: start: 20110729, end: 20111126
  9. BLINDED LCZ696 [Suspect]
     Dosage: CODE NOT BROKEN
     Route: 048
     Dates: start: 20110729, end: 20111126
  10. BLINDED NO TREATMENT RECEIVED [Suspect]
     Dosage: CODE NOT BROKEN
     Route: 048
     Dates: start: 20110729, end: 20111126
  11. BLINDED ENALAPRIL [Suspect]
     Dosage: CODE NOT BROKEN
     Route: 048
     Dates: start: 20120425, end: 20130108
  12. BLINDED LCZ696 [Suspect]
     Dosage: CODE NOT BROKEN
     Route: 048
     Dates: start: 20120425, end: 20130108
  13. BLINDED NO TREATMENT RECEIVED [Suspect]
     Dosage: CODE NOT BROKEN
     Route: 048
     Dates: start: 20120425, end: 20130108
  14. BLINDED ENALAPRIL [Suspect]
     Dosage: CODE NOT BROKEN
     Route: 048
     Dates: start: 20130109, end: 20130406
  15. BLINDED LCZ696 [Suspect]
     Dosage: CODE NOT BROKEN
     Route: 048
     Dates: start: 20130109, end: 20130406
  16. BLINDED NO TREATMENT RECEIVED [Suspect]
     Dosage: CODE NOT BROKEN
     Route: 048
     Dates: start: 20130109, end: 20130406
  17. BLINDED ENALAPRIL [Suspect]
     Dosage: CODE NOT BROKEN
     Route: 048
     Dates: end: 20120424
  18. BLINDED LCZ696 [Suspect]
     Dosage: CODE NOT BROKEN
     Route: 048
     Dates: end: 20120424
  19. BLINDED NO TREATMENT RECEIVED [Suspect]
     Dosage: CODE NOT BROKEN
     Route: 048
     Dates: end: 20120424
  20. BLINDED ENALAPRIL [Suspect]
     Dosage: CODE NOT BROKEN
     Route: 048
     Dates: start: 20130411
  21. BLINDED LCZ696 [Suspect]
     Dosage: CODE NOT BROKEN
     Route: 048
     Dates: start: 20130411
  22. BLINDED NO TREATMENT RECEIVED [Suspect]
     Dosage: CODE NOT BROKEN
     Route: 048
     Dates: start: 20130411
  23. COMPARATOR ENALAPRIL [Suspect]
     Indication: CARDIAC FAILURE CHRONIC
     Dosage: CODE NOT BROKEN
     Route: 048
     Dates: start: 20110309, end: 20110314
  24. COMPARATOR ENALAPRIL [Suspect]
     Dosage: CODE NOT BROKEN
     Route: 048
     Dates: start: 20110316, end: 20111126
  25. COMPARATOR ENALAPRIL [Suspect]
     Dosage: CODE NOT BROKEN
     Route: 048
     Dates: start: 20110511, end: 20120424
  26. COMPARATOR ENALAPRIL [Suspect]
     Dosage: CODE NOT BROKEN
     Route: 048
     Dates: start: 20120425, end: 20130108
  27. COMPARATOR ENALAPRIL [Suspect]
     Dosage: CODE NOT BROKEN
     Route: 048
     Dates: start: 20130109, end: 20130406
  28. COMPARATOR ENALAPRIL [Suspect]
     Dosage: CODE NOT BROKEN
     Route: 048
     Dates: start: 20130411
  29. ELANTAN LA [Suspect]
     Indication: MYOCARDIAL ISCHAEMIA
     Dosage: 25 MG, QD (OD)
  30. ASPIRIN [Concomitant]
     Indication: MYOCARDIAL ISCHAEMIA
     Dosage: 75 MG, QD (OD)
  31. CARBOCISTEINE [Concomitant]
     Indication: CHRONIC OBSTRUCTIVE PULMONARY DISEASE
     Dosage: 375 MG, TID
  32. FINASTERIDE [Concomitant]
     Indication: PROSTATISM
     Dosage: 5 MG, QD (OD)
  33. SERETIDE [Concomitant]
     Indication: CHRONIC OBSTRUCTIVE PULMONARY DISEASE
     Dosage: 2 DF, UNK (250 MG/2 PUFFS)
  34. OMACOR [Concomitant]
     Indication: DRUG THERAPY
     Dosage: 1 G, QD (OD)
  35. SIMVASTATIN [Concomitant]
     Indication: DRUG THERAPY
     Dosage: 40 MG, QHS (NOCTE)
  36. BUMETANIDE [Concomitant]
     Indication: CARDIAC FAILURE CHRONIC
     Dosage: 1 MG, QD (OD)
  37. LANSOPRAZOLE [Concomitant]
     Indication: PROPHYLAXIS
     Dosage: 30 MG, QD (OD)
  38. SPIRIVA [Concomitant]
     Indication: CHRONIC OBSTRUCTIVE PULMONARY DISEASE
     Dosage: 18 UG, QD (OD)
  39. PREDNISOLONE [Concomitant]
     Indication: CHRONIC OBSTRUCTIVE PULMONARY DISEASE
     Dosage: 5 MG, QD (OD)
  40. NOVOMIX 30 [Concomitant]
     Indication: DIABETES MELLITUS
     Dosage: 44 IU, BID
  41. FERROUS FUMARATE [Concomitant]
     Indication: ANAEMIA
     Dosage: 305 MG, QD (OD)
  42. GTN [Concomitant]
     Indication: MYOCARDIAL ISCHAEMIA
     Dosage: PRN
  43. HYDROXOCOBALAMIN [Concomitant]
     Indication: ANAEMIA
     Dosage: 3 MONTHLY

REACTIONS (5)
  - Constipation [Recovered/Resolved]
  - Abdominal pain [Recovered/Resolved]
  - Urinary tract infection [Recovered/Resolved]
  - Pneumonia [Recovered/Resolved]
  - Concomitant disease progression [Recovered/Resolved]
